FAERS Safety Report 5950511-2 (Version None)
Quarter: 2008Q4

REPORT INFORMATION
  Report Type: 
  Country: None (occurrence: None)
  Receive Date: 20081112
  Receipt Date: 20081111
  Transmission Date: 20090506
  Serious: Yes (Death, Life-Threatening, Hospitalization)
  Sender: FDA-Public Use
  Company Number: GB-WYE-G02067708

PATIENT
  Sex: Male

DRUGS (3)
  1. GEMTUZUMAB OZOGAMICIN [Suspect]
     Dosage: 'PROTOCOL DOSE'
     Dates: start: 20080805, end: 20080815
  2. CYTARABINE [Concomitant]
     Dosage: 'PROTOCOL DOSE'
     Dates: start: 20080805, end: 20080815
  3. DAUNORUBICIN HCL [Concomitant]
     Dosage: 'PROTOCOL DOSE'
     Dates: start: 20080805, end: 20080815

REACTIONS (2)
  - PLATELET COUNT DECREASED [None]
  - SUBDURAL HAEMORRHAGE [None]
